FAERS Safety Report 6077225-5 (Version None)
Quarter: 2009Q1

REPORT INFORMATION
  Report Type: 
  Country: None (occurrence: None)
  Receive Date: 20090213
  Receipt Date: 20090206
  Transmission Date: 20090719
  Serious: Yes (Hospitalization)
  Sender: FDA-Public Use
  Company Number: A0694268A

PATIENT
  Age: 58 Year
  Sex: Male
  Weight: 134.1 kg

DRUGS (9)
  1. AVANDIA [Suspect]
     Indication: TYPE 2 DIABETES MELLITUS
     Dosage: 8MG PER DAY
     Route: 048
     Dates: start: 20060410, end: 20071001
  2. AVANDAMET [Suspect]
     Indication: TYPE 2 DIABETES MELLITUS
     Dosage: 4MG TWICE PER DAY
     Route: 048
     Dates: start: 20060221, end: 20060410
  3. METFORMIN HCL [Concomitant]
     Dates: start: 20060101
  4. GLUCOTROL [Concomitant]
     Dates: start: 20060414, end: 20070101
  5. HYDROCHLOROTHIAZIDE [Concomitant]
     Dates: start: 20060701
  6. CLONIDINE HCL [Concomitant]
  7. PLAVIX [Concomitant]
  8. NITROGLYCERIN [Concomitant]
     Dates: start: 20060401
  9. GLUCOPHAGE [Concomitant]

REACTIONS (29)
  - ADVERSE EVENT [None]
  - AMNESIA [None]
  - CARDIOMYOPATHY [None]
  - CAROTID ARTERIOSCLEROSIS [None]
  - CEREBRAL ATROPHY [None]
  - CEREBRAL ISCHAEMIA [None]
  - CEREBROVASCULAR DISORDER [None]
  - CHEST PAIN [None]
  - CORONARY ARTERY DISEASE [None]
  - DIABETIC NEUROPATHY [None]
  - DISORIENTATION [None]
  - EMOTIONAL DISTRESS [None]
  - FEAR [None]
  - HEPATIC FAILURE [None]
  - HYPERTENSION [None]
  - HYPOAESTHESIA [None]
  - INJURY [None]
  - ISCHAEMIC STROKE [None]
  - LACUNAR INFARCTION [None]
  - LIVER INJURY [None]
  - MEMORY IMPAIRMENT [None]
  - MUSCULAR WEAKNESS [None]
  - MYOCARDIAL INFARCTION [None]
  - MYOCARDIAL ISCHAEMIA [None]
  - OEDEMA [None]
  - PAIN [None]
  - PARAESTHESIA [None]
  - PERIPHERAL COLDNESS [None]
  - TREATMENT NONCOMPLIANCE [None]
